FAERS Safety Report 8275323-9 (Version None)
Quarter: 2012Q2

REPORT INFORMATION
  Report Type: 
  Country: None (occurrence: None)
  Receive Date: 20120411
  Receipt Date: 20120224
  Transmission Date: 20120825
  Serious: Yes (Hospitalization)
  Sender: FDA-Public Use
  Company Number: HK-ROCHE-1031549

PATIENT
  Sex: Female

DRUGS (1)
  1. MIRCERA [Suspect]
     Indication: PRODUCT USED FOR UNKNOWN INDICATION
     Dosage: FORM: NOT REPORTED
     Route: 058
     Dates: start: 20110426, end: 20120121

REACTIONS (3)
  - DEVICE RELATED INFECTION [None]
  - HAEMOGLOBIN DECREASED [None]
  - DRUG INEFFECTIVE [None]
